FAERS Safety Report 9664120 (Version 1)
Quarter: 2013Q4

REPORT INFORMATION
  Report Type: Spontaneous
  Country: US (occurrence: None)
  Receive Date: 20131030
  Receipt Date: 20131030
  Transmission Date: 20140711
  Serious: No
  Sender: FDA-Public Use
  Company Number: None

PATIENT
  Age: 74 Year
  Sex: Male

DRUGS (1)
  1. LIDOCAIN W/EPINEPHRINE [Suspect]
     Dosage: 22C? SQ X
     Dates: start: 20130925

REACTIONS (2)
  - Convulsion [None]
  - Heart rate increased [None]
